FAERS Safety Report 16106349 (Version 2)
Quarter: 2019Q2

REPORT INFORMATION
  Report Type: Spontaneous
  Country: US (occurrence: US)
  Receive Date: 20190322
  Receipt Date: 20190624
  Transmission Date: 20190711
  Serious: No
  Sender: FDA-Public Use
  Company Number: US-CATALYST PHARMACEUTICALS, INC-2019CAT00042

PATIENT
  Sex: Female
  Weight: 72.56 kg

DRUGS (2)
  1. AMIFAMPRIDINE [Suspect]
     Active Substance: AMIFAMPRIDINE
     Dosage: 20 MG, EVERY 6 HOURS
     Route: 048
     Dates: start: 2008
  2. AMIFAMPRIDINE [Suspect]
     Active Substance: AMIFAMPRIDINE
     Indication: MYASTHENIC SYNDROME
     Dosage: 20 MG, (EVERY 9 HOURS)
     Route: 048
     Dates: start: 200702, end: 2008

REACTIONS (3)
  - Paraesthesia [Not Recovered/Not Resolved]
  - Hypoaesthesia oral [Not Recovered/Not Resolved]
  - Paraesthesia oral [Not Recovered/Not Resolved]
